FAERS Safety Report 7432117-1 (Version None)
Quarter: 2011Q2

REPORT INFORMATION
  Report Type: 
  Country: None (occurrence: None)
  Receive Date: 20110422
  Receipt Date: 20110420
  Transmission Date: 20111010
  Serious: Yes (Other)
  Sender: FDA-Public Use
  Company Number: CA-PFIZER INC-2011086466

PATIENT
  Age: 76 Year
  Sex: Female

DRUGS (1)
  1. CHAMPIX [Suspect]
     Dosage: 0.5 MG, UNK
     Dates: start: 20110409, end: 20110419

REACTIONS (2)
  - NAUSEA [None]
  - APHAGIA [None]
